FAERS Safety Report 9431092 (Version 2)
Quarter: 2013Q4

REPORT INFORMATION
  Report Type: Report from Study
  Country: BR (occurrence: BR)
  Receive Date: 20130730
  Receipt Date: 20131126
  Transmission Date: 20140711
  Serious: Yes (Other)
  Sender: FDA-Public Use
  Company Number: BR-ROCHE-1228995

PATIENT
  Age: 58 Year
  Sex: Female
  Weight: 65 kg

DRUGS (6)
  1. INTERFERON ALFA-2A [Suspect]
     Indication: PRODUCT USED FOR UNKNOWN INDICATION
     Route: 065
     Dates: start: 2002
  2. RIBAVIRIN [Suspect]
     Indication: HEPATITIS C
     Dosage: DOSE- 2 TABLETS PER DAY.
     Route: 065
     Dates: start: 2002
  3. RIBAVIRIN [Suspect]
     Route: 065
     Dates: start: 2010, end: 2011
  4. PEGASYS [Suspect]
     Indication: HEPATITIS C
     Route: 065
     Dates: start: 2010, end: 2011
  5. METFORMIN [Concomitant]
     Indication: DIABETES MELLITUS
  6. OMEPRAZOLE [Concomitant]
     Indication: GASTRITIS

REACTIONS (10)
  - Varices oesophageal [Not Recovered/Not Resolved]
  - Hepatic cirrhosis [Not Recovered/Not Resolved]
  - Weight increased [Recovered/Resolved]
  - Drug ineffective [Unknown]
  - Ascites [Recovered/Resolved]
  - Dizziness [Recovered/Resolved]
  - Asthenia [Recovered/Resolved]
  - Cough [Not Recovered/Not Resolved]
  - Vomiting [Unknown]
  - Pruritus generalised [Not Recovered/Not Resolved]
